FAERS Safety Report 14666766 (Version 2)
Quarter: 2020Q1

REPORT INFORMATION
  Report Type: Report from Study
  Country: DE (occurrence: DE)
  Receive Date: 20180322
  Receipt Date: 20200124
  Transmission Date: 20200409
  Serious: Yes (Hospitalization)
  Sender: FDA-Public Use
  Company Number: DE-ROCHE-1781891

PATIENT
  Age: 25 Year
  Sex: Female

DRUGS (12)
  1. MONTELUKAST [Concomitant]
     Active Substance: MONTELUKAST SODIUM
  2. PROGRAF [Concomitant]
     Active Substance: TACROLIMUS
  3. AZITHROMYCIN ANHYDROUS. [Concomitant]
     Active Substance: AZITHROMYCIN ANHYDROUS
  4. PANKREATIN [Concomitant]
     Active Substance: PANCRELIPASE
  5. SODIUM CHLORIDE. [Concomitant]
     Active Substance: SODIUM CHLORIDE
  6. BLINDED PIRFENIDONE [Suspect]
     Active Substance: PIRFENIDONE
     Dosage: MAINTENANCE DOSE: TITRATION OF DRUG AS PER PROTOCOL UP TO 9 TABLETS PER DAY.
     Route: 048
     Dates: start: 20160510
  7. BLINDED PIRFENIDONE [Suspect]
     Active Substance: PIRFENIDONE
     Indication: OBLITERATIVE BRONCHIOLITIS
     Dosage: 9 TABLETS PER DAY.
     Route: 048
     Dates: start: 20160510
  8. COTRIMOXAZOLE [Concomitant]
     Active Substance: SULFAMETHOXAZOLE\TRIMETHOPRIM
  9. PREDNISOLONE. [Concomitant]
     Active Substance: PREDNISOLONE
  10. COLISTIN [Concomitant]
     Active Substance: COLISTIN
  11. MYFORTIC [Concomitant]
     Active Substance: MYCOPHENOLATE SODIUM
  12. GLYCOPYRRONIUM BROMIDE;INDACATEROL MALEATE [Concomitant]
     Active Substance: GLYCOPYRROLATE\INDACATEROL MALEATE

REACTIONS (1)
  - Dyspnoea [Unknown]

NARRATIVE: CASE EVENT DATE: 20160602
